FAERS Safety Report 9433777 (Version 2)
Quarter: 2013Q3

REPORT INFORMATION
  Report Type: Spontaneous
  Country: US (occurrence: US)
  Receive Date: 20130731
  Receipt Date: 20130806
  Transmission Date: 20140515
  Serious: No
  Sender: FDA-Public Use
  Company Number: US-ASTRAZENECA-2013SE51494

PATIENT
  Age: 72 Year
  Sex: Male
  Weight: 94.8 kg

DRUGS (11)
  1. SEROQUEL XR [Suspect]
     Indication: MAJOR DEPRESSION
     Route: 048
     Dates: start: 2013
  2. SEROQUEL XR [Suspect]
     Indication: MAJOR DEPRESSION
     Dosage: GENERIC, 3, 150 MG PILLS
     Route: 065
     Dates: start: 201305
  3. SEROQUEL XR [Suspect]
     Indication: MAJOR DEPRESSION
     Dosage: 300 MG PILL AND 150
     Route: 048
  4. SEROQUEL XR [Suspect]
     Indication: MAJOR DEPRESSION
     Dosage: 400 MG PILL AND A 50M
     Route: 048
  5. SEROQUEL XR [Suspect]
     Indication: MAJOR DEPRESSION
     Dosage: 200 MG AND 20 MG
     Route: 048
  6. PROZAC [Concomitant]
     Indication: DEPRESSION
     Route: 048
  7. TRAZADONE [Concomitant]
  8. REMERON [Concomitant]
     Route: 048
  9. METFORMIN [Concomitant]
  10. INSULIN [Concomitant]
  11. XANAX [Concomitant]
     Dosage: 1 MG, 5 PILLS

REACTIONS (10)
  - Confusional state [Not Recovered/Not Resolved]
  - Depression [Not Recovered/Not Resolved]
  - Adverse event [Not Recovered/Not Resolved]
  - Anxiety [Unknown]
  - Panic attack [Unknown]
  - Insomnia [Unknown]
  - Nervousness [Unknown]
  - Feeling abnormal [Unknown]
  - Intentional drug misuse [Unknown]
  - Drug ineffective [Unknown]
